FAERS Safety Report 10411216 (Version 2)
Quarter: 2014Q3

REPORT INFORMATION
  Report Type: Spontaneous
  Country: US (occurrence: US)
  Receive Date: 20140826
  Receipt Date: 20140826
  Transmission Date: 20150326
  Serious: No
  Sender: FDA-Public Use
  Company Number: US-ASTRAZENECA-2013SE87329

PATIENT
  Age: 77 Year
  Sex: Female

DRUGS (4)
  1. SYMBICORT [Suspect]
     Active Substance: BUDESONIDE\FORMOTEROL FUMARATE DIHYDRATE
     Indication: CHRONIC OBSTRUCTIVE PULMONARY DISEASE
     Dosage: 80/4.5, 2 PUFFS TWO TIMES A DAY
     Route: 055
     Dates: start: 20131108, end: 201311
  2. VITAMIN D [Concomitant]
     Active Substance: CHOLECALCIFEROL
     Indication: HYPOVITAMINOSIS
     Dates: start: 2012
  3. FLAX SEED [Concomitant]
     Active Substance: FLAX SEED
     Indication: ARTHRITIS
     Dosage: 1-2 TABLETS DAILY
  4. FLAX SEED [Concomitant]
     Active Substance: FLAX SEED
     Indication: DRY EYE
     Dosage: 1-2 TABLETS DAILY

REACTIONS (4)
  - Visual impairment [Not Recovered/Not Resolved]
  - Visual impairment [Not Recovered/Not Resolved]
  - Off label use [Unknown]
  - Vision blurred [Not Recovered/Not Resolved]

NARRATIVE: CASE EVENT DATE: 20131108
